FAERS Safety Report 15747408 (Version 2)
Quarter: 2021Q4

REPORT INFORMATION
  Report Type: Spontaneous
  Country: US (occurrence: US)
  Receive Date: 20181220
  Receipt Date: 20211214
  Transmission Date: 20220303
  Serious: No
  Sender: FDA-Public Use
  Company Number: US-GILEAD-2018-0380893

PATIENT
  Age: 48 Year
  Sex: Female

DRUGS (2)
  1. VEMLIDY [Suspect]
     Active Substance: TENOFOVIR ALAFENAMIDE FUMARATE
     Indication: Hepatitis viral
     Dosage: 1 DOSAGE FORM, QD
     Route: 048
     Dates: start: 201708
  2. VEMLIDY [Suspect]
     Active Substance: TENOFOVIR ALAFENAMIDE FUMARATE
     Indication: Coma hepatic

REACTIONS (2)
  - Therapy interrupted [Unknown]
  - Therapy interrupted [Unknown]
